FAERS Safety Report 19799294 (Version 2)
Quarter: 2022Q2

REPORT INFORMATION
  Report Type: Spontaneous
  Country: US (occurrence: US)
  Receive Date: 20210907
  Receipt Date: 20220502
  Transmission Date: 20220721
  Serious: No
  Sender: FDA-Public Use
  Company Number: US-PFIZER INC-202101138613

PATIENT
  Age: 56 Year
  Sex: Female
  Weight: 93.44 kg

DRUGS (3)
  1. LYRICA [Suspect]
     Active Substance: PREGABALIN
     Indication: Fibromyalgia
     Dosage: 150 MG, 3X/DAY
  2. LYRICA [Suspect]
     Active Substance: PREGABALIN
     Indication: Diabetes mellitus
     Dosage: 100 MG
  3. LYRICA [Suspect]
     Active Substance: PREGABALIN
     Indication: Arthralgia

REACTIONS (5)
  - Intentional product misuse [Unknown]
  - Fatigue [Unknown]
  - Feeling abnormal [Unknown]
  - Impaired driving ability [Unknown]
  - Confusional state [Unknown]
